FAERS Safety Report 6649570-3 (Version None)
Quarter: 2010Q1

REPORT INFORMATION
  Report Type: 
  Country: None (occurrence: None)
  Receive Date: 20100324
  Receipt Date: 20100324
  Transmission Date: 20100710
  Serious: Yes (Death)
  Sender: FDA-Public Use
  Company Number: None

PATIENT
  Age: 73 Year
  Sex: Male
  Weight: 85 kg

DRUGS (11)
  1. SIMVASTATIN [Suspect]
     Indication: HYPERLIPIDAEMIA
     Dosage: 80 MG ONCE DAILY PO
     Route: 048
     Dates: start: 20091206, end: 20091223
  2. SIMVASTATIN [Suspect]
     Indication: STENT PLACEMENT
     Dosage: 80 MG ONCE DAILY PO
     Route: 048
     Dates: start: 20091206, end: 20091223
  3. ASPIRIN [Concomitant]
  4. METOPROLOL [Concomitant]
  5. NITROGLYCERIN [Concomitant]
  6. CILOSTAZOL [Concomitant]
  7. DIOVAN [Concomitant]
  8. FUROSEMIDE [Concomitant]
  9. DOXAZOSIN [Concomitant]
  10. ALLOPURINOL [Concomitant]
  11. CLOPIDOGREL [Concomitant]

REACTIONS (8)
  - CHEST PAIN [None]
  - CONFUSIONAL STATE [None]
  - DYSPHAGIA [None]
  - DYSPNOEA [None]
  - HAEMODIALYSIS [None]
  - MYOSITIS [None]
  - RENAL IMPAIRMENT [None]
  - RHABDOMYOLYSIS [None]
